FAERS Safety Report 13938071 (Version 1)
Quarter: 2017Q3

REPORT INFORMATION
  Report Type: Spontaneous
  Country: US (occurrence: US)
  Receive Date: 20170905
  Receipt Date: 20170905
  Transmission Date: 20171127
  Serious: Yes (Other)
  Sender: FDA-Public Use
  Company Number: US-CASPER PHARMA LLC-2017SEB00403

PATIENT
  Age: 53 Year
  Sex: Male
  Weight: 67.39 kg

DRUGS (10)
  1. CELLCEPT [Suspect]
     Active Substance: MYCOPHENOLATE MOFETIL\MYCOPHENOLATE MOFETIL HYDROCHLORIDE
     Dosage: UNK
     Dates: end: 200401
  2. IMURAN [Suspect]
     Active Substance: AZATHIOPRINE
     Indication: VASCULITIS
     Dosage: UNK
     Dates: start: 200307, end: 200401
  3. AVAPRO [Concomitant]
     Active Substance: IRBESARTAN
     Dosage: 150 MG, 1X/DAY
     Route: 048
  4. NORVASC [Concomitant]
     Active Substance: AMLODIPINE BESYLATE
     Dosage: 5 MG, 1X/DAY
     Route: 048
  5. ZORTRESS [Suspect]
     Active Substance: EVEROLIMUS
     Indication: RENAL TRANSPLANT
     Dosage: 2.25 MG, 2X/DAY
     Dates: start: 20160813
  6. IMURAN [Suspect]
     Active Substance: AZATHIOPRINE
     Indication: IMMUNOSUPPRESSION
  7. NEORAL [Suspect]
     Active Substance: CYCLOSPORINE
     Indication: RENAL TRANSPLANT
     Dosage: UNK
     Dates: start: 200208
  8. PEPCID [Concomitant]
     Active Substance: FAMOTIDINE
     Dosage: 20 MG, 1X/DAY
  9. PREDNISONE. [Concomitant]
     Active Substance: PREDNISONE
     Dosage: 5 MG, 1X/DAY
     Route: 048
  10. RAPAMUNE [Suspect]
     Active Substance: SIROLIMUS
     Indication: RENAL TRANSPLANT
     Dosage: UNK
     Dates: start: 200208, end: 200510

REACTIONS (15)
  - Mitral valve incompetence [Unknown]
  - Left ventricular hypertrophy [Unknown]
  - Weight decreased [Not Recovered/Not Resolved]
  - Aneurysm [Unknown]
  - Squamous cell carcinoma of skin [Recovering/Resolving]
  - Aortic valve incompetence [Unknown]
  - Blood creatinine abnormal [Unknown]
  - Atrial fibrillation [Unknown]
  - Proteinuria [Not Recovered/Not Resolved]
  - Mitral valve stenosis [Unknown]
  - Inguinal hernia [Recovered/Resolved]
  - Cough [Recovering/Resolving]
  - Left ventricular dysfunction [Unknown]
  - Osteopenia [Unknown]
  - Insomnia [Not Recovered/Not Resolved]

NARRATIVE: CASE EVENT DATE: 200510
